FAERS Safety Report 5896818-9 (Version None)
Quarter: 2008Q3

REPORT INFORMATION
  Report Type: 
  Country: None (occurrence: None)
  Receive Date: 20080924
  Receipt Date: 20071211
  Transmission Date: 20090109
  Serious: No
  Sender: FDA-Public Use
  Company Number: US-ASTRAZENECA-2007UW28205

PATIENT
  Age: 21 Year
  Sex: Female
  Weight: 52.2 kg

DRUGS (6)
  1. SEROQUEL [Suspect]
     Route: 048
  2. JUNEL FE [Concomitant]
  3. AMBIEN [Concomitant]
  4. MAXALT [Concomitant]
  5. SYMBICORT [Concomitant]
  6. ALBUTEROL [Concomitant]

REACTIONS (3)
  - COMPULSIVE LIP BITING [None]
  - MUSCLE SPASMS [None]
  - MYALGIA [None]
